FAERS Safety Report 20629692 (Version 1)
Quarter: 2022Q1

REPORT INFORMATION
  Report Type: Spontaneous
  Country: US (occurrence: US)
  Receive Date: 20220323
  Receipt Date: 20220323
  Transmission Date: 20220424
  Serious: Yes (Hospitalization, Other)
  Sender: FDA-Public Use
  Company Number: US-AUROBINDO-AUR-APL-2022-009613

PATIENT
  Age: 69 Year
  Sex: Male

DRUGS (3)
  1. CYCLOPHOSPHAMIDE [Suspect]
     Active Substance: CYCLOPHOSPHAMIDE
     Indication: Acquired factor VIII deficiency
     Dosage: 150 MILLIGRAM, ONCE A DAY
     Route: 065
  2. PREDNISONE [Suspect]
     Active Substance: PREDNISONE
     Indication: Acquired factor VIII deficiency
     Dosage: 80 MILLIGRAM, ONCE A DAY
     Route: 065
  3. RITUXIMAB [Suspect]
     Active Substance: RITUXIMAB
     Indication: Acquired factor VIII deficiency
     Dosage: 1000 MILLIGRAM (THREE RITUXIMAB 1000MG INFUSIONS)
     Route: 065

REACTIONS (2)
  - Osteomyelitis [Unknown]
  - Cardiac arrest [Unknown]
